FAERS Safety Report 16178417 (Version 1)
Quarter: 2019Q2

REPORT INFORMATION
  Report Type: Spontaneous
  Country: US (occurrence: US)
  Receive Date: 20190306
  Receipt Date: 20190306
  Transmission Date: 20190711
  Serious: No
  Sender: FDA-Public Use
  Company Number: None

PATIENT
  Age: 74 Year
  Sex: Female
  Weight: 92.99 kg

DRUGS (1)
  1. ERIVEDGE [Suspect]
     Active Substance: VISMODEGIB
     Indication: BASAL CELL CARCINOMA
     Route: 048
     Dates: start: 201809

REACTIONS (6)
  - Prostatic specific antigen increased [None]
  - Ageusia [None]
  - Taste disorder [None]
  - Muscle spasms [None]
  - Blood creatine increased [None]
  - Hypotrichosis [None]
